FAERS Safety Report 7982310-4 (Version None)
Quarter: 2011Q4

REPORT INFORMATION
  Report Type: 
  Country: None (occurrence: None)
  Receive Date: 20111215
  Receipt Date: 20111205
  Transmission Date: 20120403
  Serious: Yes (Hospitalization, Other)
  Sender: FDA-Public Use
  Company Number: PHHY2011FR93510

PATIENT
  Sex: Male

DRUGS (5)
  1. VOLTAREN [Suspect]
     Indication: MUSCULOSKELETAL PAIN
     Dosage: 75 MG DAILY
  2. VOLTAREN [Suspect]
     Dosage: 75 MG, BID
     Route: 048
     Dates: start: 20111003
  3. ACETAMINOPHEN [Concomitant]
     Dosage: 1 DF, TID
     Route: 048
     Dates: start: 20111003
  4. LANSOPRAZOLE [Concomitant]
     Dosage: 15 MG, QD
     Route: 048
     Dates: start: 20111003
  5. PROTON PUMP INHIBITORS [Concomitant]
     Dosage: UNK

REACTIONS (6)
  - HAEMOGLOBIN DECREASED [None]
  - COLONIC POLYP [None]
  - MELAENA [None]
  - FAECES DISCOLOURED [None]
  - DIZZINESS [None]
  - DECREASED APPETITE [None]
